FAERS Safety Report 4579663-6 (Version None)
Quarter: 2005Q1

REPORT INFORMATION
  Report Type: 
  Country: None (occurrence: None)
  Receive Date: 20050210
  Receipt Date: 20050127
  Transmission Date: 20050727
  Serious: Yes (Death)
  Sender: FDA-Public Use
  Company Number: B0365987A

PATIENT
  Age: 37 Year
  Sex: Male

DRUGS (5)
  1. RETROVIR [Suspect]
     Indication: HIV INFECTION
     Dates: start: 20000101
  2. EPIVIR [Suspect]
     Indication: HIV INFECTION
     Dates: start: 20000101
  3. ZIAGEN [Suspect]
     Indication: HIV INFECTION
  4. INDINAVIR SULFATE (INDINAVIR SULFATE) [Suspect]
     Indication: HIV INFECTION
     Dates: start: 20000101
  5. CIDOFOVIR [Concomitant]

REACTIONS (11)
  - AGITATION [None]
  - COORDINATION ABNORMAL [None]
  - DEPRESSION [None]
  - DYSARTHRIA [None]
  - IMMUNE RECONSTITUTION SYNDROME [None]
  - JC VIRUS INFECTION [None]
  - MEMORY IMPAIRMENT [None]
  - MUTISM [None]
  - PROGRESSIVE MULTIFOCAL LEUKOENCEPHALOPATHY [None]
  - TREATMENT NONCOMPLIANCE [None]
  - TREMOR [None]
